APPROVED DRUG PRODUCT: BUTRANS
Active Ingredient: BUPRENORPHINE
Strength: 7.5MCG/HR
Dosage Form/Route: FILM, EXTENDED RELEASE;TRANSDERMAL
Application: N021306 | Product #005 | TE Code: AB
Applicant: PURDUE PHARMA LP
Approved: Jun 30, 2014 | RLD: Yes | RS: No | Type: RX